FAERS Safety Report 24322701 (Version 1)
Quarter: 2024Q3

REPORT INFORMATION
  Report Type: Spontaneous
  Country: US (occurrence: US)
  Receive Date: 20240916
  Receipt Date: 20240916
  Transmission Date: 20241016
  Serious: Yes (Other)
  Sender: ASTELLAS
  Company Number: US-ASTELLAS-2024-AER-005280

PATIENT
  Age: 83 Year

DRUGS (2)
  1. IZERVAY [Suspect]
     Active Substance: AVACINCAPTAD PEGOL SODIUM
     Indication: Product used for unknown indication
     Dosage: 02-MAY-2024 (FIRST INJECTION)
     Route: 065
     Dates: start: 20240502
  2. IZERVAY [Suspect]
     Active Substance: AVACINCAPTAD PEGOL SODIUM
     Dosage: 24-JUN-2024 (SECOND INJECTION)
     Route: 065
     Dates: start: 20240624

REACTIONS (2)
  - Vitritis [Unknown]
  - Iritis [Unknown]

NARRATIVE: CASE EVENT DATE: 20240705
